FAERS Safety Report 19832497 (Version 1)
Quarter: 2021Q3

REPORT INFORMATION
  Report Type: Spontaneous
  Country: US (occurrence: US)
  Receive Date: 20210915
  Receipt Date: 20210915
  Transmission Date: 20211014
  Serious: Yes (Hospitalization)
  Sender: FDA-Public Use
  Company Number: None

PATIENT
  Sex: Male

DRUGS (4)
  1. TOPROL XL [Concomitant]
     Active Substance: METOPROLOL SUCCINATE
     Dates: start: 20210907
  2. NPLATE [Suspect]
     Active Substance: ROMIPLOSTIM
     Indication: THROMBOCYTOPENIA
     Dosage: ?          OTHER FREQUENCY:PER WEEK;?
     Route: 058
     Dates: start: 20210818
  3. LASIX [Concomitant]
     Active Substance: FUROSEMIDE
     Dates: start: 20210907
  4. NOXAFIL [Concomitant]
     Active Substance: POSACONAZOLE
     Dates: start: 20210907

REACTIONS (1)
  - Infection [None]
